FAERS Safety Report 7906429-9 (Version None)
Quarter: 2011Q4

REPORT INFORMATION
  Report Type: 
  Country: None (occurrence: None)
  Receive Date: 20111110
  Receipt Date: 20111031
  Transmission Date: 20120403
  Serious: Yes (Other)
  Sender: FDA-Public Use
  Company Number: AU-SHIRE-SPV1-2011-01248

PATIENT
  Sex: Male

DRUGS (7)
  1. FOSRENOL [Suspect]
     Indication: RENAL FAILURE CHRONIC
     Dosage: 1000 MG, 3X/DAY:TID
     Route: 048
     Dates: start: 20100201, end: 20111005
  2. ASPIRIN [Concomitant]
     Indication: TRANSIENT ISCHAEMIC ATTACK
     Dosage: 100 MG, 1X/DAY:QD
     Route: 065
  3. ANTIHYPERTENSIVE [Concomitant]
     Indication: HYPERTENSION
     Dosage: UNK, UNKNOWN
     Route: 065
  4. ASPIRIN [Concomitant]
     Dosage: 150 MG, 1X/DAY:QD
     Route: 065
     Dates: start: 20110901
  5. CALCITRIOL [Concomitant]
     Indication: RENAL FAILURE CHRONIC
     Dosage: 0.25 MG, 1X/DAY:QD
  6. FOSRENOL [Suspect]
     Dosage: 500 MG, 3X/DAY:TID
     Route: 048
     Dates: start: 20090901, end: 20100201
  7. CINACALCET [Concomitant]
     Indication: BLOOD PARATHYROID HORMONE INCREASED
     Dosage: 60 MG, 1X/DAY:QD

REACTIONS (2)
  - CEREBELLAR SYNDROME [None]
  - ATAXIA [None]
